FAERS Safety Report 9240420 (Version 1)
Quarter: 2013Q2

REPORT INFORMATION
  Report Type: Spontaneous
  Country: US (occurrence: None)
  Receive Date: 20130417
  Receipt Date: 20130417
  Transmission Date: 20140414
  Serious: Yes (Other)
  Sender: FDA-Public Use
  Company Number: ACO_35238_2013

PATIENT
  Age: 64 Year
  Sex: Female
  Weight: 62.1 kg

DRUGS (9)
  1. AMPYRA (DALFAMPRIDINE) TABLET, 10MG [Suspect]
     Indication: MULTIPLE SCLEROSIS
     Dates: start: 2010
  2. AMPYRA (DALFAMPRIDINE) TABLET, 10MG [Suspect]
     Indication: GAIT DISTURBANCE
     Dates: start: 2010
  3. TYSABRI (NATALIZUMAB) [Suspect]
     Indication: PRODUCT USED FOR UNKNOWN INDICATION
  4. BONIVA (IBANDRONATE SODIUM) [Concomitant]
  5. PAXIL (PAROXETINE HYDROCHLORIDE) [Concomitant]
  6. BACLOFEN (BACLOFEN) [Concomitant]
  7. VITAMIN D (ERGOCALCIFEROL) [Concomitant]
  8. LIPITOR (ATORVASTATIN CALCIUM) [Concomitant]
  9. COREG (CARVEDILOL) [Concomitant]

REACTIONS (1)
  - Deep vein thrombosis [None]
